FAERS Safety Report 24073347 (Version 3)
Quarter: 2024Q4

REPORT INFORMATION
  Report Type: Spontaneous
  Country: CA (occurrence: CA)
  Receive Date: 20240710
  Receipt Date: 20241007
  Transmission Date: 20250114
  Serious: Yes (Other)
  Sender: PFIZER
  Company Number: CA-PFIZER INC-202400208562

PATIENT
  Age: 52 Year
  Sex: Female

DRUGS (1)
  1. ABRILADA [Suspect]
     Active Substance: ADALIMUMAB-AFZB
     Indication: Ankylosing spondylitis
     Dosage: 40 MG, EVERY 2 WEEK
     Route: 058
     Dates: start: 20230901, end: 20240628

REACTIONS (6)
  - Colitis microscopic [Unknown]
  - Condition aggravated [Unknown]
  - Cough [Unknown]
  - Dry mouth [Unknown]
  - Dry throat [Unknown]
  - Psoriasis [Unknown]
